FAERS Safety Report 5227935-4 (Version None)
Quarter: 2007Q1

REPORT INFORMATION
  Report Type: 
  Country: None (occurrence: None)
  Receive Date: 20061201
  Receipt Date: 20060404
  Transmission Date: 20070707
  Serious: Yes (Other)
  Sender: FDA-Public Use
  Company Number: 2006-140809-NL

PATIENT
  Age: 20 Year
  Sex: Female
  Weight: 88.9 kg

DRUGS (3)
  1. NUVARING [Suspect]
     Indication: CONTRACEPTION
     Dosage: VAGINAL
     Route: 067
     Dates: start: 20051220, end: 20060216
  2. LEXAPRO [Concomitant]
  3. AMBIEN [Concomitant]

REACTIONS (1)
  - PULMONARY EMBOLISM [None]
